FAERS Safety Report 23524583 (Version 3)
Quarter: 2025Q1

REPORT INFORMATION
  Report Type: Report from Study
  Country: US (occurrence: US)
  Receive Date: 20240215
  Receipt Date: 20250127
  Transmission Date: 20250408
  Serious: Yes (Hospitalization, Other)
  Sender: TAKEDA
  Company Number: US-TAKEDA-US201724094

PATIENT
  Age: 68 Year
  Sex: Female

DRUGS (3)
  1. HUMAN IMMUNOGLOBULIN G [Suspect]
     Active Substance: HUMAN IMMUNOGLOBULIN G
     Indication: Primary immunodeficiency syndrome
  2. GAMMAGARD LIQUID [Suspect]
     Active Substance: HUMAN IMMUNOGLOBULIN G
     Indication: Primary immunodeficiency syndrome
     Dosage: 15 GRAM, 1/WEEK
  3. GAMMAGARD LIQUID [Suspect]
     Active Substance: HUMAN IMMUNOGLOBULIN G
     Dosage: 10 GRAM, 1/WEEK

REACTIONS (8)
  - Nephrolithiasis [Unknown]
  - Sepsis [Unknown]
  - Headache [Unknown]
  - Blood immunoglobulin G increased [Unknown]
  - COVID-19 [Unknown]
  - Nasopharyngitis [Unknown]
  - Sinusitis [Unknown]
  - Migraine [Unknown]

NARRATIVE: CASE EVENT DATE: 20221117
